FAERS Safety Report 24074797 (Version 1)
Quarter: 2024Q3

REPORT INFORMATION
  Report Type: Spontaneous
  Country: US (occurrence: None)
  Receive Date: 20240710
  Receipt Date: 20240710
  Transmission Date: 20241017
  Serious: Yes (Other)
  Sender: Public
  Company Number: None

PATIENT
  Age: 32 Year
  Sex: Female
  Weight: 75.15 kg

DRUGS (1)
  1. ORIAHNN [Suspect]
     Active Substance: ELAGOLIX SODIUM\ESTRADIOL\NORETHINDRONE
     Indication: Uterine leiomyoma
     Dates: start: 20240626, end: 20240710

REACTIONS (13)
  - Nausea [None]
  - Vulvovaginal pruritus [None]
  - Vomiting [None]
  - Fatigue [None]
  - Menstruation irregular [None]
  - Menstrual clots [None]
  - Heavy menstrual bleeding [None]
  - Headache [None]
  - Muscular weakness [None]
  - Irritability [None]
  - Dysmenorrhoea [None]
  - Alopecia [None]
  - Hot flush [None]

NARRATIVE: CASE EVENT DATE: 20240630
